FAERS Safety Report 7470895-6 (Version None)
Quarter: 2011Q2

REPORT INFORMATION
  Report Type: 
  Country: None (occurrence: None)
  Receive Date: 20110506
  Receipt Date: 20110506
  Transmission Date: 20111010
  Serious: Yes (Hospitalization)
  Sender: FDA-Public Use
  Company Number: None

PATIENT
  Sex: Female
  Weight: 79.8331 kg

DRUGS (2)
  1. SPORANOX [Concomitant]
  2. CIMZIA [Suspect]
     Indication: HISTOPLASMOSIS
     Dosage: 2 SHOTS IN STOMACH TWICE A MONTH (2) SHOTS

REACTIONS (3)
  - HISTOPLASMOSIS [None]
  - COUGH [None]
  - LUNG NEOPLASM MALIGNANT [None]
